FAERS Safety Report 6167683-X (Version None)
Quarter: 2009Q2

REPORT INFORMATION
  Report Type: 
  Country: None (occurrence: None)
  Receive Date: 20090424
  Receipt Date: 20090414
  Transmission Date: 20091009
  Serious: Yes (Hospitalization)
  Sender: FDA-Public Use
  Company Number: JP-AMGEN-US335923

PATIENT
  Sex: Male
  Weight: 43 kg

DRUGS (11)
  1. ENBREL [Suspect]
     Indication: RHEUMATOID ARTHRITIS
     Dosage: SWITCHED BACK TO SOLUTION FOR INJECTION
     Route: 058
     Dates: start: 20070625, end: 20090212
  2. RHEUMATREX [Concomitant]
     Indication: RHEUMATOID ARTHRITIS
     Route: 048
     Dates: start: 20060401
  3. RHEUMATREX [Concomitant]
     Route: 048
     Dates: start: 20031001
  4. RHEUMATREX [Concomitant]
     Dates: start: 20040601
  5. PRIMPERAN [Concomitant]
     Indication: GASTRIC DISORDER
     Route: 048
  6. CINAL [Concomitant]
     Indication: VITAMIN SUPPLEMENTATION
     Route: 048
  7. DOPASOL [Concomitant]
     Indication: PARKINSONISM
     Route: 048
  8. PREDONINE [Concomitant]
     Indication: RHEUMATOID ARTHRITIS
     Route: 048
     Dates: start: 20040301
  9. PREDONINE [Concomitant]
     Route: 048
     Dates: start: 20061101
  10. PREDONINE [Concomitant]
     Route: 048
     Dates: start: 20070625
  11. ASPIRIN [Concomitant]
     Indication: CEREBRAL INFARCTION
     Route: 048

REACTIONS (4)
  - OPPORTUNISTIC INFECTION [None]
  - PSEUDOMONAS INFECTION [None]
  - PYREXIA [None]
  - RASH [None]
